FAERS Safety Report 21287484 (Version 1)
Quarter: 2022Q3

REPORT INFORMATION
  Report Type: Spontaneous
  Country: US (occurrence: US)
  Receive Date: 20220902
  Receipt Date: 20220902
  Transmission Date: 20221026
  Serious: No
  Sender: FDA-Public Use
  Company Number: US-ABBVIE-22K-163-4503743-00

PATIENT
  Sex: Female

DRUGS (2)
  1. SYNTHROID [Suspect]
     Active Substance: LEVOTHYROXINE SODIUM
     Indication: Hypothyroidism
     Route: 048
  2. SYNTHROID [Suspect]
     Active Substance: LEVOTHYROXINE SODIUM
     Dosage: HALF OF THE TABLET, DECREASED
     Route: 048

REACTIONS (4)
  - Psychomotor hyperactivity [Unknown]
  - Feeling jittery [Unknown]
  - Blood test abnormal [Unknown]
  - Hyperthyroidism [Unknown]
